FAERS Safety Report 4331660-1 (Version None)
Quarter: 2004Q1

REPORT INFORMATION
  Report Type: 
  Country: None (occurrence: None)
  Receive Date: 20040331
  Receipt Date: 20040322
  Transmission Date: 20041129
  Serious: Yes (Hospitalization, Other)
  Sender: FDA-Public Use
  Company Number: GB-SHR-03-011891

PATIENT
  Age: 39 Year
  Sex: Female

DRUGS (1)
  1. MIRENA [Suspect]
     Indication: CONTRACEPTION
     Dosage: 20 UG, INTRA-UTERINE
     Route: 015
     Dates: start: 20000628, end: 20030618

REACTIONS (2)
  - BREAST CANCER [None]
  - PROGESTERONE RECEPTOR ASSAY POSITIVE [None]
